FAERS Safety Report 8416428-9 (Version None)
Quarter: 2012Q2

REPORT INFORMATION
  Report Type: 
  Country: None (occurrence: None)
  Receive Date: 20120606
  Receipt Date: 20120524
  Transmission Date: 20120825
  Serious: Yes (Other)
  Sender: FDA-Public Use
  Company Number: DE-VERTEX PHARMACEUTICALS INC.-000000000000000784

PATIENT
  Age: 58 Year
  Sex: Male

DRUGS (4)
  1. ALL OTHER THERAPEUTIC DRUG [Concomitant]
     Route: 065
  2. INCIVO [Suspect]
     Indication: PRODUCT USED FOR UNKNOWN INDICATION
     Dosage: DOSAGE FORM: TABLET
     Route: 048
  3. ALL OTHER THERAPEUTIC DRUG [Concomitant]
     Route: 065
  4. ALL OTHER THERAPEUTIC DRUG [Concomitant]
     Indication: PRODUCT USED FOR UNKNOWN INDICATION
     Route: 065

REACTIONS (1)
  - IIIRD NERVE PARALYSIS [None]
